FAERS Safety Report 4479666-6 (Version None)
Quarter: 2004Q4

REPORT INFORMATION
  Report Type: 
  Country: None (occurrence: None)
  Receive Date: 20041015
  Receipt Date: 20040930
  Transmission Date: 20050328
  Serious: Yes (Hospitalization)
  Sender: FDA-Public Use
  Company Number: 205495

PATIENT
  Age: 52 Year
  Sex: Female

DRUGS (2)
  1. AVONEX [Suspect]
     Indication: MULTIPLE SCLEROSIS
     Dosage: 30 MCG QW IM
     Route: 030
     Dates: start: 20020731
  2. AVONEX [Suspect]
     Dosage: 30 MCG QW IM
     Route: 030

REACTIONS (6)
  - ARTHRALGIA [None]
  - ARTHROPATHY [None]
  - BALANCE DISORDER [None]
  - CHONDROPATHY [None]
  - FALL [None]
  - JOINT EFFUSION [None]
